FAERS Safety Report 24227214 (Version 3)
Quarter: 2024Q3

REPORT INFORMATION
  Report Type: Spontaneous
  Country: US (occurrence: US)
  Receive Date: 20240820
  Receipt Date: 20240902
  Transmission Date: 20241017
  Serious: Yes (Hospitalization, Other)
  Sender: TORRENT
  Company Number: US-TORRENT-00013716

PATIENT
  Age: 40 Year
  Sex: Female

DRUGS (1)
  1. DICHLORPHENAMIDE [Suspect]
     Active Substance: DICHLORPHENAMIDE
     Indication: Paralysis
     Dosage: UNKNOWN
     Route: 065

REACTIONS (6)
  - Fatigue [Unknown]
  - Dysuria [Unknown]
  - Hypoaesthesia [Unknown]
  - Sluggishness [Unknown]
  - Nephrolithiasis [Unknown]
  - Kidney infection [Unknown]
